FAERS Safety Report 22943432 (Version 3)
Quarter: 2023Q4

REPORT INFORMATION
  Report Type: Spontaneous
  Country: IN (occurrence: IN)
  Receive Date: 20230914
  Receipt Date: 20231020
  Transmission Date: 20240110
  Serious: Yes (Hospitalization, Other)
  Sender: FDA-Public Use
  Company Number: IN-PFIZER INC-2020392907

PATIENT
  Age: 55 Year
  Sex: Male

DRUGS (8)
  1. SUTENT [Suspect]
     Active Substance: SUNITINIB MALATE
     Indication: Metastatic renal cell carcinoma
     Dosage: ONCE A DAY 2 WEEKS ON AND 1 WEEK OFF
     Route: 048
     Dates: start: 20201009
  2. SUTENT [Suspect]
     Active Substance: SUNITINIB MALATE
     Dosage: 2 WEEKS ON 1 WEEK OFF
     Route: 048
     Dates: start: 20211027
  3. SUTENT [Suspect]
     Active Substance: SUNITINIB MALATE
     Dosage: OD FOR 14 DAYS AND 10 DAYS GAP
     Route: 048
  4. SUTENT [Suspect]
     Active Substance: SUNITINIB MALATE
     Dosage: OD X 14DAYS, 7 DAYS, 6 WEEKS
     Route: 048
     Dates: start: 202010
  5. VITAMIN B12 [Concomitant]
     Active Substance: CYANOCOBALAMIN
     Dosage: UNK
  6. ACETAMINOPHEN [Concomitant]
     Active Substance: ACETAMINOPHEN
     Dosage: UNK (500 SOS)
  7. VITAMIN B COMPLEX [Concomitant]
     Active Substance: CYANOCOBALAMIN\DEXPANTHENOL\NIACINAMIDE\PYRIDOXINE HYDROCHLORIDE\RIBOFLAVIN 5^-PHOSPHATE SODIUM\THIA
     Dosage: 1 DF, 1X/DAY (2 WEEKS)
  8. UREA CREAM WITH LACTIC ACID [Concomitant]
     Dosage: UNK

REACTIONS (27)
  - Respiratory failure [Unknown]
  - Pleural effusion [Unknown]
  - Electrocardiogram QT prolonged [Unknown]
  - Palmar-plantar erythrodysaesthesia syndrome [Not Recovered/Not Resolved]
  - Platelet count decreased [Unknown]
  - Malaise [Unknown]
  - Impaired work ability [Unknown]
  - Pain [Unknown]
  - Blood pressure increased [Recovered/Resolved]
  - Blood urea increased [Unknown]
  - Alanine aminotransferase increased [Recovered/Resolved]
  - White blood cell count decreased [Unknown]
  - Neutrophil count decreased [Unknown]
  - Mean cell volume increased [Unknown]
  - Blood creatinine increased [Not Recovered/Not Resolved]
  - Haemoglobin decreased [Not Recovered/Not Resolved]
  - Bundle branch block right [Unknown]
  - Blood bilirubin increased [Unknown]
  - Glycosylated haemoglobin increased [Unknown]
  - Skin disorder [Unknown]
  - Pulmonary mass [Unknown]
  - Dyspnoea exertional [Unknown]
  - Fatigue [Unknown]
  - Off label use [Unknown]
  - Product use issue [Unknown]
  - Glycosylated haemoglobin decreased [Unknown]
  - Neoplasm progression [Unknown]

NARRATIVE: CASE EVENT DATE: 20210910
